FAERS Safety Report 11132654 (Version 1)
Quarter: 2015Q2

REPORT INFORMATION
  Report Type: Report from Study
  Country: US (occurrence: US)
  Receive Date: 20150522
  Receipt Date: 20150522
  Transmission Date: 20150821
  Serious: Yes (Other)
  Sender: FDA-Public Use
  Company Number: PHEH2015US009033

PATIENT
  Sex: Male

DRUGS (1)
  1. GILENYA [Suspect]
     Active Substance: FINGOLIMOD HYDROCHLORIDE
     Indication: PRODUCT USED FOR UNKNOWN INDICATION
     Dosage: 0.5 MG, QD
     Route: 048

REACTIONS (17)
  - Cognitive disorder [Unknown]
  - Fatigue [Unknown]
  - Insomnia [Unknown]
  - Hypoaesthesia [Unknown]
  - Burning sensation [Unknown]
  - Sinus congestion [Recovered/Resolved]
  - Sleep apnoea syndrome [Unknown]
  - Albumin globulin ratio increased [Unknown]
  - Sinusitis [Unknown]
  - Secretion discharge [Recovered/Resolved]
  - Central nervous system lesion [Unknown]
  - Memory impairment [Unknown]
  - Lymphopenia [Unknown]
  - Paraesthesia [Unknown]
  - Muscle spasms [Unknown]
  - Dysarthria [Unknown]
  - Neutrophil count decreased [Unknown]
